FAERS Safety Report 24190162 (Version 1)
Quarter: 2024Q3

REPORT INFORMATION
  Report Type: Spontaneous
  Country: US (occurrence: US)
  Receive Date: 20240808
  Receipt Date: 20240808
  Transmission Date: 20241016
  Serious: Yes (Other)
  Sender: PFIZER
  Company Number: US-PFIZER INC-202400231241

PATIENT
  Age: 55 Year
  Sex: Female

DRUGS (3)
  1. CARBOPLATIN [Suspect]
     Active Substance: CARBOPLATIN
     Dosage: CYCLE 1, SHE RECEIVED DAY 1 AND DAY 8
     Dates: start: 20220531
  2. KEYTRUDA [Suspect]
     Active Substance: PEMBROLIZUMAB
     Dosage: CYCLE 1, SHE RECEIVED DAY 1 AND DAY 8
     Dates: start: 20220531
  3. TAXOL [Suspect]
     Active Substance: PACLITAXEL
     Dosage: CYCLE 1, SHE RECEIVED DAY 1 AND DAY 8
     Dates: start: 20220531

REACTIONS (2)
  - Thrombocytopenia [Unknown]
  - Neutropenia [Unknown]
